FAERS Safety Report 25875004 (Version 2)
Quarter: 2025Q4

REPORT INFORMATION
  Report Type: Spontaneous
  Country: EU (occurrence: EU)
  Receive Date: 20251002
  Receipt Date: 20251013
  Transmission Date: 20260117
  Serious: Yes (Other)
  Sender: TEVA
  Company Number: EU-EMB-M202407304-1

PATIENT
  Age: 30 Year
  Sex: Female
  Weight: 77 kg

DRUGS (5)
  1. QUETIAPINE [Suspect]
     Active Substance: QUETIAPINE
     Indication: Anxiety disorder
     Route: 065
     Dates: start: 202405, end: 202502
  2. Covaxis [Concomitant]
     Indication: Immunisation
     Route: 065
     Dates: start: 202412, end: 202412
  3. FLUVOXAMINE [Suspect]
     Active Substance: FLUVOXAMINE
     Indication: Anxiety disorder
     Route: 065
     Dates: start: 202405, end: 202411
  4. PAROXETINE [Suspect]
     Active Substance: PAROXETINE
     Indication: Anxiety disorder
     Route: 065
     Dates: start: 202411, end: 202502
  5. VAXIGRIPTETRA [Suspect]
     Active Substance: INFLUENZA VIRUS VACCINE QUADRIVALENT TYPE A+B
     Indication: Product used for unknown indication
     Dosage: 2020/2021
     Route: 065
     Dates: start: 202409, end: 202409

REACTIONS (2)
  - Gestational diabetes [Recovered/Resolved]
  - Maternal exposure during pregnancy [Unknown]
